FAERS Safety Report 19689547 (Version 1)
Quarter: 2021Q3

REPORT INFORMATION
  Report Type: Spontaneous
  Country: US (occurrence: US)
  Receive Date: 20210811
  Receipt Date: 20210811
  Transmission Date: 20211014
  Serious: Yes (Other)
  Sender: FDA-Public Use
  Company Number: None

PATIENT
  Sex: Female

DRUGS (1)
  1. FLUOXETINE 20MG CAPSULE [Suspect]
     Active Substance: FLUOXETINE HYDROCHLORIDE
     Indication: PANIC DISORDER
     Route: 048

REACTIONS (5)
  - Product substitution issue [None]
  - Anxiety [None]
  - Panic reaction [None]
  - Paranoia [None]
  - Insomnia [None]

NARRATIVE: CASE EVENT DATE: 20210719
